FAERS Safety Report 9381430 (Version 1)
Quarter: 2013Q3

REPORT INFORMATION
  Report Type: Report from Study
  Country: BR (occurrence: BR)
  Receive Date: 20130703
  Receipt Date: 20130703
  Transmission Date: 20140515
  Serious: Yes (Life-Threatening, Other)
  Sender: FDA-Public Use
  Company Number: PHHY2013BR069113

PATIENT
  Sex: Male

DRUGS (2)
  1. MIACALCIC [Suspect]
     Indication: OSTEOPOROSIS
     Dosage: 1 DF, DAILY (1 INHALATION ONCE A DAY)
     Dates: start: 20130628, end: 20130628
  2. CALCIUM [Concomitant]

REACTIONS (2)
  - Apparent death [Recovering/Resolving]
  - Hypotension [Recovering/Resolving]
